FAERS Safety Report 4986141-9 (Version None)
Quarter: 2006Q2

REPORT INFORMATION
  Report Type: 
  Country: None (occurrence: None)
  Receive Date: 20060428
  Receipt Date: 20060330
  Transmission Date: 20061013
  Serious: Yes (Death, Hospitalization, Disabling)
  Sender: FDA-Public Use
  Company Number: US-MERCK-0604USA00169

PATIENT
  Age: 65 Year
  Sex: Female
  Weight: 86 kg

DRUGS (2)
  1. VIOXX [Suspect]
     Indication: ARTHRALGIA
     Route: 048
     Dates: start: 20030101, end: 20040801
  2. VIOXX [Suspect]
     Indication: ARTHRITIS
     Route: 048
     Dates: start: 20030101, end: 20040801

REACTIONS (7)
  - ADVERSE EVENT [None]
  - CARDIOPULMONARY FAILURE [None]
  - CEREBROVASCULAR ACCIDENT [None]
  - DEPRESSED LEVEL OF CONSCIOUSNESS [None]
  - DIABETES MELLITUS INSULIN-DEPENDENT [None]
  - HYPERTENSION [None]
  - RENAL FAILURE [None]
